FAERS Safety Report 9657279 (Version 2)
Quarter: 2013Q4

REPORT INFORMATION
  Report Type: Spontaneous
  Country: IL (occurrence: IL)
  Receive Date: 20131030
  Receipt Date: 20131030
  Transmission Date: 20140711
  Serious: Yes (Other)
  Sender: FDA-Public Use
  Company Number: IL-VERTEX PHARMACEUTICALS INC-2013-004832

PATIENT
  Age: 58 Year
  Sex: Male

DRUGS (2)
  1. INCIVO [Suspect]
     Indication: PRODUCT USED FOR UNKNOWN INDICATION
     Route: 048
  2. INCIVO [Suspect]
     Route: 048

REACTIONS (3)
  - Cardiac disorder [Unknown]
  - Haemoglobin decreased [Unknown]
  - Asthenia [Unknown]
